FAERS Safety Report 5907347-8 (Version None)
Quarter: 2008Q3

REPORT INFORMATION
  Report Type: 
  Country: None (occurrence: None)
  Receive Date: 20080929
  Receipt Date: 20080917
  Transmission Date: 20090109
  Serious: Yes (Hospitalization)
  Sender: FDA-Public Use
  Company Number: 2008AL010754

PATIENT
  Age: 56 Year
  Sex: Female

DRUGS (6)
  1. NAPROXEN DELAYED-RELEASE TABLETS, 500 MG (PUREPAC) (NAPROXEN DELAYED-R [Suspect]
     Indication: PAIN
     Dosage: PO
     Route: 048
     Dates: start: 20080828, end: 20080829
  2. ACETAMINOPHEN [Concomitant]
  3. BENDROFLUMETHIAZIDE [Concomitant]
  4. SIMVASTATIN [Concomitant]
  5. RAMIPRIL [Concomitant]
  6. OMEPRAZOLE [Concomitant]

REACTIONS (3)
  - CHEST DISCOMFORT [None]
  - LIP SWELLING [None]
  - SWELLING FACE [None]
